FAERS Safety Report 8245564-5 (Version None)
Quarter: 2012Q1

REPORT INFORMATION
  Report Type: 
  Country: None (occurrence: None)
  Receive Date: 20120329
  Receipt Date: 20110708
  Transmission Date: 20120608
  Serious: Yes (Other)
  Sender: FDA-Public Use
  Company Number: PHHY2011JP46043

PATIENT
  Sex: Female

DRUGS (1)
  1. ZOMETA [Suspect]
     Indication: METASTASES TO BONE
     Dosage: UNK UKN, UNK
     Route: 041
     Dates: start: 20071101, end: 20080601

REACTIONS (8)
  - PRIMARY SEQUESTRUM [None]
  - EXPOSED BONE IN JAW [None]
  - GINGIVAL INFECTION [None]
  - GINGIVAL ERYTHEMA [None]
  - GINGIVAL SWELLING [None]
  - OSTEONECROSIS OF JAW [None]
  - FISTULA [None]
  - PAIN IN JAW [None]
